FAERS Safety Report 5282836-0 (Version None)
Quarter: 2007Q1

REPORT INFORMATION
  Report Type: 
  Country: None (occurrence: None)
  Receive Date: 20070329
  Receipt Date: 20070329
  Transmission Date: 20070707
  Serious: Yes (Hospitalization)
  Sender: FDA-Public Use
  Company Number: None

PATIENT
  Age: 80 Year
  Sex: Male
  Weight: 99.3377 kg

DRUGS (12)
  1. DIGOXIN [Suspect]
     Indication: ATRIAL FIBRILLATION
     Dosage: 0.125 MG M, W, F DAILY PO
     Route: 048
     Dates: start: 20070124, end: 20070311
  2. DIGOXIN [Suspect]
     Dosage: .25 MG SUN, TU, TH, SAT PO
     Route: 048
  3. ALBUTEROL [Concomitant]
  4. BUMETANIDE [Concomitant]
  5. DIGOXIN [Concomitant]
  6. FERROUS SULFATE [Concomitant]
  7. HYDROCODONE [Concomitant]
  8. INSULIN NOVOLIN [Concomitant]
  9. METOPROLOL SUCCINATE [Concomitant]
  10. M.V.I. [Concomitant]
  11. OMEPRAZOLE [Concomitant]
  12. SIMVASTATIN [Concomitant]

REACTIONS (2)
  - PNEUMONIA [None]
  - THERAPEUTIC AGENT TOXICITY [None]
